FAERS Safety Report 5529099-6 (Version None)
Quarter: 2007Q4

REPORT INFORMATION
  Report Type: 
  Country: None (occurrence: None)
  Receive Date: 20071129
  Receipt Date: 20061205
  Transmission Date: 20080405
  Serious: No
  Sender: FDA-Public Use
  Company Number: A0630406A

PATIENT
  Age: 53 Year
  Sex: Female

DRUGS (3)
  1. WELLBUTRIN SR [Suspect]
     Indication: DEPRESSION
     Dosage: 300MG PER DAY
     Route: 048
     Dates: start: 20051201
  2. DIURETIC [Concomitant]
  3. DIET PILL [Concomitant]

REACTIONS (1)
  - DRUG INEFFECTIVE [None]
